FAERS Safety Report 16529819 (Version 1)
Quarter: 2019Q3

REPORT INFORMATION
  Report Type: Spontaneous
  Country: US (occurrence: US)
  Receive Date: 20190704
  Receipt Date: 20190704
  Transmission Date: 20191004
  Serious: No
  Sender: FDA-Public Use
  Company Number: US-TEVA-2019-US-1066791

PATIENT
  Sex: Female

DRUGS (12)
  1. SYNRIBO [Suspect]
     Active Substance: OMACETAXINE MEPESUCCINATE
     Indication: CHRONIC MYELOID LEUKAEMIA
     Dosage: DOSE: 3MG/0.86 ML
     Route: 065
  2. LIPITOR [Concomitant]
     Active Substance: ATORVASTATIN CALCIUM
     Route: 065
  3. PRILOSEC [Concomitant]
     Active Substance: OMEPRAZOLE MAGNESIUM
     Route: 065
  4. POTASSIUM [Concomitant]
     Active Substance: POTASSIUM
     Route: 065
  5. ICAPS [Concomitant]
     Active Substance: MINERALS\VITAMINS
     Route: 065
  6. ZIAC [Concomitant]
     Active Substance: BISOPROLOL FUMARATE\HYDROCHLOROTHIAZIDE
     Route: 065
  7. LEVOTHYROXINE. [Concomitant]
     Active Substance: LEVOTHYROXINE
     Route: 065
  8. MAGNESIUM [Concomitant]
     Active Substance: MAGNESIUM
  9. CAL MAG ZINC + D3 [Concomitant]
     Route: 065
  10. TURMERIC [Concomitant]
     Active Substance: HERBALS\TURMERIC
     Route: 065
  11. VITAMIN D3 [Concomitant]
     Active Substance: CHOLECALCIFEROL
     Route: 065
  12. SYSTANE (HYPROMELLOSE 2910 (4000 MPA.S)) [Concomitant]
     Active Substance: HYPROMELLOSE 2910 (4000 MPA.S)
     Route: 065

REACTIONS (1)
  - Fatigue [Unknown]
